FAERS Safety Report 6607783-0 (Version None)
Quarter: 2010Q1

REPORT INFORMATION
  Report Type: 
  Country: None (occurrence: None)
  Receive Date: 20100224
  Receipt Date: 20100224
  Transmission Date: 20100710
  Serious: Yes (Other)
  Sender: FDA-Public Use
  Company Number: None

PATIENT
  Sex: Male
  Weight: 72.5755 kg

DRUGS (2)
  1. LAMOTRIGINE [Suspect]
     Dosage: 200 MG DAILY PO
     Route: 048
     Dates: start: 20091208, end: 20100107
  2. LAMOTRIGINE [Suspect]
     Dosage: 200 MG DAILY PO
     Route: 048
     Dates: start: 20100108, end: 20100210

REACTIONS (7)
  - ACNE [None]
  - AGITATION [None]
  - ANXIETY [None]
  - BLISTER [None]
  - FURUNCLE [None]
  - HYPOMANIA [None]
  - PRODUCT SUBSTITUTION ISSUE [None]
